FAERS Safety Report 7569316-4 (Version None)
Quarter: 2011Q2

REPORT INFORMATION
  Report Type: 
  Country: None (occurrence: None)
  Receive Date: 20110623
  Receipt Date: 20110616
  Transmission Date: 20111010
  Serious: Yes (Life-Threatening, Disabling)
  Sender: FDA-Public Use
  Company Number: US-CELGENEUS-163-21880-11031060

PATIENT
  Sex: Male
  Weight: 85.352 kg

DRUGS (22)
  1. OMEPRAZOLE [Concomitant]
     Dosage: 20 MILLIGRAM
     Route: 048
  2. SENNA-DOCUSATE SODIUM [Concomitant]
     Dosage: 3 TABLET
     Route: 048
  3. ASCORBIC ACID [Concomitant]
     Dosage: 2000 MILLIGRAM
     Route: 048
  4. CELECOXIB [Concomitant]
     Indication: ARTHROPATHY
     Dosage: 200 MILLIGRAM
     Route: 065
  5. FENTANYL [Concomitant]
     Route: 062
  6. CALCIUM CARBONATE-VITAMIN D [Concomitant]
     Dosage: 600 MG - 200 UNIT
     Route: 048
  7. ALENDRONATE SODIUM [Concomitant]
     Dosage: 70 MILLIGRAM
     Route: 048
  8. MULTI-VITAMINS [Concomitant]
     Dosage: 1 TABLET
     Route: 048
  9. CITALOPRAM HYDROBROMIDE [Concomitant]
     Dosage: 20 MILLIGRAM
     Route: 048
  10. OMEGA [Concomitant]
     Dosage: 2000 MILLIGRAM
     Route: 048
  11. PSYLLIUM [Concomitant]
     Dosage: 30 CC
     Route: 048
  12. BACLOFEN [Concomitant]
     Dosage: 0.5 - 1 TABS
     Route: 048
  13. SILDENAFIL CITRATE [Concomitant]
     Dosage: 100 MILLIGRAM
     Route: 048
  14. REVLIMID [Suspect]
     Indication: MULTIPLE MYELOMA
     Dosage: 25 MILLIGRAM
     Route: 048
     Dates: start: 20090401, end: 20090808
  15. PPI [Concomitant]
     Route: 065
  16. TRAIMCINOLONE ACETONIDE [Concomitant]
     Route: 061
  17. FENTANYL [Concomitant]
     Dosage: 50 MICROGRAM
     Route: 062
  18. REVLIMID [Suspect]
     Dosage: 10 MILLIGRAM
     Route: 048
     Dates: start: 20100910
  19. ZOLPIDEM [Concomitant]
     Dosage: 10 MILLIGRAM
     Route: 048
  20. ASPIRIN [Concomitant]
     Dosage: 81 MILLIGRAM
     Route: 048
  21. DIPHENHYDRAMINE HCL [Concomitant]
     Dosage: 25 MILLIGRAM
     Route: 048
  22. NORCO [Concomitant]
     Dosage: 10-325 MG
     Route: 048

REACTIONS (2)
  - NEUROPATHY PERIPHERAL [None]
  - MULTIPLE MYELOMA [None]
